FAERS Safety Report 24780526 (Version 1)
Quarter: 2024Q4

REPORT INFORMATION
  Report Type: Spontaneous
  Country: US (occurrence: US)
  Receive Date: 20241227
  Receipt Date: 20241227
  Transmission Date: 20250114
  Serious: No
  Sender: ABBVIE
  Company Number: US-ABBVIE-6062133

PATIENT
  Age: 26 Year
  Sex: Female
  Weight: 81 kg

DRUGS (1)
  1. HUMIRA [Suspect]
     Active Substance: ADALIMUMAB
     Indication: Rheumatoid arthritis
     Route: 058
     Dates: start: 202412

REACTIONS (5)
  - Injection site discharge [Not Recovered/Not Resolved]
  - Injection site haemorrhage [Recovered/Resolved]
  - Product quality issue [Not Recovered/Not Resolved]
  - Injection site reaction [Recovered/Resolved]
  - Device issue [Not Recovered/Not Resolved]

NARRATIVE: CASE EVENT DATE: 20241223
